FAERS Safety Report 14184242 (Version 2)
Quarter: 2017Q4

REPORT INFORMATION
  Report Type: Report from Study
  Country: US (occurrence: US)
  Receive Date: 20171113
  Receipt Date: 20171115
  Transmission Date: 20180321
  Serious: Yes (Hospitalization)
  Sender: FDA-Public Use
  Company Number: US-JNJFOC-20171110884

PATIENT
  Age: 15 Year
  Sex: Male
  Weight: 58.97 kg

DRUGS (2)
  1. STELARA [Concomitant]
     Active Substance: USTEKINUMAB
     Route: 058
  2. REMICADE [Suspect]
     Active Substance: INFLIXIMAB
     Indication: INFLAMMATORY BOWEL DISEASE
     Route: 042
     Dates: start: 20151110, end: 201704

REACTIONS (2)
  - Anal abscess [Recovered/Resolved with Sequelae]
  - Anal fistula [Recovered/Resolved with Sequelae]

NARRATIVE: CASE EVENT DATE: 20170801
